FAERS Safety Report 7770778-8 (Version None)
Quarter: 2011Q3

REPORT INFORMATION
  Report Type: 
  Country: None (occurrence: None)
  Receive Date: 20110922
  Receipt Date: 20100914
  Transmission Date: 20111222
  Serious: Yes (Hospitalization)
  Sender: FDA-Public Use
  Company Number: US-ASTRAZENECA-2009UW09914

PATIENT
  Age: 46 Year
  Sex: Female
  Weight: 89.8 kg

DRUGS (19)
  1. SEROQUEL [Suspect]
     Indication: DEPRESSION
     Route: 048
     Dates: start: 20051201, end: 20090201
  2. SEROQUEL [Suspect]
     Indication: SLEEP DISORDER
     Route: 048
     Dates: start: 20051201, end: 20090201
  3. SEROQUEL [Suspect]
     Route: 048
     Dates: start: 20051201, end: 20090301
  4. RISPERDAL [Concomitant]
     Indication: SLEEP DISORDER
     Dates: start: 20051201, end: 20090201
  5. SEROQUEL [Suspect]
     Route: 048
     Dates: start: 20070509, end: 20080201
  6. SEROQUEL [Suspect]
     Route: 048
     Dates: start: 20051201, end: 20090301
  7. REMERON [Concomitant]
  8. SEROQUEL [Suspect]
     Route: 048
     Dates: start: 20051201, end: 20090301
  9. RISPERDAL [Concomitant]
     Indication: DEPRESSION
     Dates: start: 20051201, end: 20090201
  10. TRAZODONE HYDROCHLORIDE [Concomitant]
     Dates: start: 20060101, end: 20071201
  11. RISPERDAL [Concomitant]
     Dosage: 1-2 MG
     Dates: start: 20061201, end: 20090301
  12. RISPERDAL [Concomitant]
     Dosage: 1-2 MG
     Dates: start: 20090601
  13. SEROQUEL [Suspect]
     Indication: INSOMNIA
     Route: 048
     Dates: start: 20051201, end: 20090201
  14. SEROQUEL [Suspect]
     Route: 048
     Dates: start: 20070509, end: 20080201
  15. SEROQUEL [Suspect]
     Route: 048
     Dates: start: 20070509, end: 20080201
  16. RISPERDAL [Concomitant]
     Dosage: 1-2 MG
     Dates: start: 20061201, end: 20090301
  17. ZYPREXA [Concomitant]
  18. RISPERDAL [Concomitant]
     Dosage: 1-2 MG
     Dates: start: 20090601
  19. CYMBALTA [Concomitant]
     Dates: start: 20051001

REACTIONS (7)
  - CEREBROVASCULAR ACCIDENT [None]
  - TYPE 2 DIABETES MELLITUS [None]
  - BACK PAIN [None]
  - DYSARTHRIA [None]
  - HYPERLIPIDAEMIA [None]
  - PAIN [None]
  - BLOOD CHOLESTEROL INCREASED [None]
